FAERS Safety Report 9263218 (Version 1)
Quarter: 2013Q2

REPORT INFORMATION
  Report Type: Spontaneous
  Country: US (occurrence: None)
  Receive Date: 20130429
  Receipt Date: 20130429
  Transmission Date: 20140414
  Serious: Yes (Death)
  Sender: FDA-Public Use
  Company Number: None

PATIENT
  Age: 93 Year
  Sex: Female
  Weight: 61.23 kg

DRUGS (1)
  1. ACTIVASE [Suspect]
     Indication: ISCHAEMIC STROKE
     Route: 042
     Dates: start: 20130313

REACTIONS (1)
  - Unresponsive to stimuli [None]
